FAERS Safety Report 14802358 (Version 1)
Quarter: 2018Q2

REPORT INFORMATION
  Report Type: Spontaneous
  Country: US (occurrence: US)
  Receive Date: 20180424
  Receipt Date: 20180424
  Transmission Date: 20180711
  Serious: No
  Sender: FDA-Public Use
  Company Number: US-PURDUE-USA-2018-0142969

PATIENT
  Sex: Female

DRUGS (1)
  1. OXYCODONE HCL CR TABLETS (SIMILAR TO NDA 22-272) [Suspect]
     Active Substance: OXYCODONE HYDROCHLORIDE
     Indication: PAIN
     Dosage: 15 MG, UNK
     Route: 048

REACTIONS (8)
  - Nausea [Unknown]
  - Pyrexia [Unknown]
  - Dehydration [Unknown]
  - Chills [Unknown]
  - Myalgia [Unknown]
  - Pain [Unknown]
  - Influenza like illness [Unknown]
  - Vomiting [Unknown]
